FAERS Safety Report 5733191-0 (Version None)
Quarter: 2008Q2

REPORT INFORMATION
  Report Type: 
  Country: None (occurrence: None)
  Receive Date: 20080509
  Receipt Date: 20080430
  Transmission Date: 20081010
  Serious: Yes (Death, Hospitalization, Other)
  Sender: FDA-Public Use
  Company Number: US-AMGEN-US267167

PATIENT
  Sex: Female
  Weight: 36.3 kg

DRUGS (1)
  1. PROCRIT [Suspect]
     Indication: ANAEMIA

REACTIONS (3)
  - PNEUMONIA [None]
  - PNEUMONIA ASPIRATION [None]
  - TONGUE NEOPLASM MALIGNANT STAGE UNSPECIFIED [None]
